FAERS Safety Report 4296878-5 (Version None)
Quarter: 2004Q1

REPORT INFORMATION
  Report Type: 
  Country: None (occurrence: None)
  Receive Date: 20040126
  Receipt Date: 20030827
  Transmission Date: 20041129
  Serious: No
  Sender: FDA-Public Use
  Company Number: USA030845597

PATIENT
  Age: 10 Year
  Sex: Male
  Weight: 33 kg

DRUGS (1)
  1. STRATTERA [Suspect]
     Indication: ATTENTION DEFICIT/HYPERACTIVITY DISORDER
     Dosage: 45 MG/DAY
     Dates: start: 20030201

REACTIONS (5)
  - BLEPHAROSPASM [None]
  - MYDRIASIS [None]
  - NAUSEA [None]
  - SOMNOLENCE [None]
  - WEIGHT INCREASED [None]
